FAERS Safety Report 11759793 (Version 1)
Quarter: 2015Q4

REPORT INFORMATION
  Report Type: Spontaneous
  Country: US (occurrence: US)
  Receive Date: 20151120
  Receipt Date: 20151120
  Transmission Date: 20160304
  Serious: Yes (Death, Other)
  Sender: FDA-Public Use
  Company Number: US-INCYTE CORPORATION-2015IN006014

PATIENT
  Age: 53 Year
  Sex: Male

DRUGS (1)
  1. JAKAFI [Suspect]
     Active Substance: RUXOLITINIB
     Indication: MYELOFIBROSIS
     Route: 065

REACTIONS (5)
  - Post procedural haematoma [Unknown]
  - Haemoptysis [Unknown]
  - Dyspnoea [Unknown]
  - Haemothorax [Fatal]
  - Chronic myelomonocytic leukaemia [Unknown]
